FAERS Safety Report 6410053-7 (Version None)
Quarter: 2009Q4

REPORT INFORMATION
  Report Type: 
  Country: None (occurrence: None)
  Receive Date: 20091022
  Receipt Date: 20091019
  Transmission Date: 20100525
  Serious: Yes (Hospitalization)
  Sender: FDA-Public Use
  Company Number: FI-ASTRAZENECA-2009SE20851

PATIENT
  Age: 11 Month
  Sex: Male

DRUGS (1)
  1. PULMICORT HFA [Suspect]
     Indication: BRONCHIAL OBSTRUCTION
     Route: 055
     Dates: start: 20091001

REACTIONS (3)
  - BRONCHIAL OBSTRUCTION [None]
  - DRUG DISPENSING ERROR [None]
  - OFF LABEL USE [None]
